FAERS Safety Report 13302457 (Version 2)
Quarter: 2017Q1

REPORT INFORMATION
  Report Type: Report from Study
  Country: US (occurrence: US)
  Receive Date: 20170307
  Receipt Date: 20170309
  Transmission Date: 20170428
  Serious: Yes (Hospitalization)
  Sender: FDA-Public Use
  Company Number: US-GILEAD-2017-0260067

PATIENT
  Age: 3 Year
  Sex: Male
  Weight: 12 kg

DRUGS (3)
  1. AMBRISENTAN [Suspect]
     Active Substance: AMBRISENTAN
     Indication: CONGENITAL PULMONARY HYPERTENSION
     Dosage: 5 MG, QD
     Route: 065
     Dates: start: 20160511
  2. AMBRISENTAN [Suspect]
     Active Substance: AMBRISENTAN
     Indication: ANGIOPATHY
  3. SILDENAFIL CITRATE. [Concomitant]
     Active Substance: SILDENAFIL CITRATE

REACTIONS (2)
  - Wound infection [Unknown]
  - Off label use [Not Recovered/Not Resolved]

NARRATIVE: CASE EVENT DATE: 20160511
